FAERS Safety Report 16794331 (Version 1)
Quarter: 2019Q3

REPORT INFORMATION
  Report Type: Spontaneous
  Country: US (occurrence: US)
  Receive Date: 20190911
  Receipt Date: 20190911
  Transmission Date: 20191005
  Serious: No
  Sender: FDA-Public Use
  Company Number: US-ROCHE-2299376

PATIENT
  Sex: Female
  Weight: 135.29 kg

DRUGS (3)
  1. DEPO-PROVERA [Concomitant]
     Active Substance: MEDROXYPROGESTERONE ACETATE
     Dosage: ONGOING: UNKNOWN
     Route: 030
     Dates: start: 20190125
  2. DEXAMETHASONE. [Concomitant]
     Active Substance: DEXAMETHASONE
     Dosage: ONGOING: UNKNOWN
     Route: 048
     Dates: start: 20190125
  3. ALECENSA [Suspect]
     Active Substance: ALECTINIB HYDROCHLORIDE
     Indication: NEOPLASM MALIGNANT
     Dosage: ONGOING: UNKNOWN
     Route: 048
     Dates: start: 20190131

REACTIONS (1)
  - Rash [Recovered/Resolved]
